FAERS Safety Report 5029106-3 (Version None)
Quarter: 2006Q2

REPORT INFORMATION
  Report Type: 
  Country: None (occurrence: None)
  Receive Date: 20060613
  Receipt Date: 20060517
  Transmission Date: 20061013
  Serious: Yes (Hospitalization)
  Sender: FDA-Public Use
  Company Number: 6022772

PATIENT
  Age: 43 Year
  Sex: Female

DRUGS (2)
  1. CELAPRAM (TABLET) (CITALOPRAM) [Suspect]
     Indication: DEPRESSION
     Dosage: 60,000 MG ORAL
     Route: 048
     Dates: start: 20030719
  2. CLOFEN (TABLET) (BACLOFEN) [Suspect]
     Dosage: 15,000 MG ORAL
     Route: 048
     Dates: start: 20030719, end: 20030721

REACTIONS (3)
  - CIRCULATORY COLLAPSE [None]
  - INCORRECT DOSE ADMINISTERED [None]
  - LOSS OF CONSCIOUSNESS [None]
